FAERS Safety Report 24414073 (Version 1)
Quarter: 2024Q4

REPORT INFORMATION
  Report Type: Spontaneous
  Country: GB (occurrence: GB)
  Receive Date: 20241008
  Receipt Date: 20241008
  Transmission Date: 20250114
  Serious: Yes (Life-Threatening, Other)
  Sender: BAUSCH AND LOMB
  Company Number: GB-BAUSCHBL-2024BNL034754

PATIENT
  Age: 62 Year
  Sex: Female

DRUGS (2)
  1. BROMFENAC SODIUM [Suspect]
     Active Substance: BROMFENAC SODIUM
     Indication: Adverse drug reaction
     Dosage: 1 DROP TWICE A DAY FOR 4 WEEKS
     Route: 065
     Dates: start: 20240911, end: 20240912
  2. BROMFENAC SODIUM [Suspect]
     Active Substance: BROMFENAC SODIUM
     Indication: Eye inflammation

REACTIONS (2)
  - Dyspnoea [Recovered/Resolved]
  - Swollen tongue [Recovered/Resolved]

NARRATIVE: CASE EVENT DATE: 20240911
